FAERS Safety Report 6814983-3 (Version None)
Quarter: 2010Q3

REPORT INFORMATION
  Report Type: 
  Country: None (occurrence: None)
  Receive Date: 20100702
  Receipt Date: 20100621
  Transmission Date: 20110219
  Serious: Yes (Hospitalization)
  Sender: FDA-Public Use
  Company Number: US-JNJFOC-20100405574

PATIENT
  Sex: Female
  Weight: 87.54 kg

DRUGS (13)
  1. REMICADE [Suspect]
     Indication: CROHN'S DISEASE
     Route: 042
  2. REMICADE [Suspect]
     Route: 042
  3. TRAMADOL HCL [Concomitant]
     Indication: FIBROMYALGIA
  4. ZYRTEC [Concomitant]
  5. OMEPRAZOLE [Concomitant]
     Indication: GASTROOESOPHAGEAL REFLUX DISEASE
  6. METOCLOPRAMIDE HYDROCHLORDIE [Concomitant]
     Indication: IMPAIRED GASTRIC EMPTYING
  7. SLOW RELEASE IRON [Concomitant]
     Indication: ANAEMIA
  8. STEROIDS NOS [Concomitant]
     Indication: PREMEDICATION
  9. HYDROCHLOROTHIAZIDE [Concomitant]
  10. HUMIRA [Concomitant]
     Indication: CROHN'S DISEASE
  11. HUMIRA [Concomitant]
  12. ENTOCORT EC [Concomitant]
     Dosage: 3 DAILY FOR 90 DAYS, THE 2 DAILY. 3 REFILLS
  13. SOLU-CORTEF [Concomitant]
     Indication: PREMEDICATION

REACTIONS (10)
  - CHEST PAIN [None]
  - CHILLS [None]
  - DYSPNOEA [None]
  - ERYTHEMA [None]
  - FLUSHING [None]
  - INFUSION RELATED REACTION [None]
  - LIP SWELLING [None]
  - PHARYNGEAL ERYTHEMA [None]
  - TREMOR [None]
  - URTICARIA [None]
